FAERS Safety Report 13352126 (Version 1)
Quarter: 2017Q1

REPORT INFORMATION
  Report Type: Spontaneous
  Country: US (occurrence: US)
  Receive Date: 20170320
  Receipt Date: 20170320
  Transmission Date: 20170429
  Serious: No
  Sender: FDA-Public Use
  Company Number: US-SA-2016SA133497

PATIENT
  Age: 78 Year
  Sex: Female
  Weight: 58.5 kg

DRUGS (6)
  1. NASACORT ALLERGY 24HR [Suspect]
     Active Substance: TRIAMCINOLONE ACETONIDE
     Indication: PARANASAL SINUS HYPERSECRETION
     Dosage: TWO PUMPS PER NOSTRIL?FORM: NASAL SPRAY
     Route: 045
     Dates: start: 20160707, end: 20160715
  2. AZOPT [Concomitant]
     Active Substance: BRINZOLAMIDE
     Indication: GLAUCOMA
     Dosage: START DATE: 6 YEARS
     Route: 065
     Dates: end: 20160627
  3. ATENOLOL. [Concomitant]
     Active Substance: ATENOLOL
     Indication: HYPERTENSION
     Dosage: START DATE: 10 YEARS
     Route: 065
  4. SYNTHROID [Concomitant]
     Active Substance: LEVOTHYROXINE SODIUM
     Indication: THYROIDECTOMY
     Route: 065
  5. HYDROCHLOROTHIAZIDE. [Concomitant]
     Active Substance: HYDROCHLOROTHIAZIDE
     Indication: HYPERTENSION
     Dosage: START DATE: 10 YEARS
     Route: 065
     Dates: end: 20160627
  6. SIMBRINZA [Concomitant]
     Active Substance: BRIMONIDINE TARTRATE\BRINZOLAMIDE
     Indication: GLAUCOMA
     Route: 065
     Dates: start: 20160627

REACTIONS (3)
  - Vision blurred [Not Recovered/Not Resolved]
  - Contraindicated product administered [Unknown]
  - Intraocular pressure increased [Not Recovered/Not Resolved]

NARRATIVE: CASE EVENT DATE: 20160707
